FAERS Safety Report 20100584 (Version 1)
Quarter: 2021Q4

REPORT INFORMATION
  Report Type: Spontaneous
  Country: US (occurrence: US)
  Receive Date: 20211123
  Receipt Date: 20211123
  Transmission Date: 20220303
  Serious: No
  Sender: FDA-Public Use
  Company Number: US-CHIESI-2020CHF05446

PATIENT
  Sex: Female

DRUGS (2)
  1. BETHKIS [Suspect]
     Active Substance: TOBRAMYCIN
     Indication: Pseudomonas infection
     Dosage: 1 DOSAGE FORM, BID
     Route: 055
     Dates: start: 202009
  2. BETHKIS [Suspect]
     Active Substance: TOBRAMYCIN
     Indication: Off label use

REACTIONS (3)
  - Weight decreased [Unknown]
  - Drug administered in wrong device [Unknown]
  - Off label use [Not Recovered/Not Resolved]

NARRATIVE: CASE EVENT DATE: 20200101
